FAERS Safety Report 6670940-1 (Version None)
Quarter: 2010Q2

REPORT INFORMATION
  Report Type: 
  Country: None (occurrence: None)
  Receive Date: 20100407
  Receipt Date: 20100330
  Transmission Date: 20101027
  Serious: Yes (Death)
  Sender: FDA-Public Use
  Company Number: US-JNJCH-2004007109

PATIENT
  Age: 3 Month
  Sex: Female
  Weight: 7.3 kg

DRUGS (1)
  1. DIPHENHYDRAMINE HYDROCHLORIDE [Suspect]
     Dosage: TEXT:UNSPECIFIED
     Route: 048

REACTIONS (4)
  - DRUG TOXICITY [None]
  - HOMICIDE [None]
  - LOSS OF CONSCIOUSNESS [None]
  - RESPIRATORY ARREST [None]
